FAERS Safety Report 10459913 (Version 1)
Quarter: 2014Q3

REPORT INFORMATION
  Report Type: Spontaneous
  Country: GB (occurrence: GB)
  Receive Date: 20140917
  Receipt Date: 20140917
  Transmission Date: 20150326
  Serious: Yes (Disabling)
  Sender: FDA-Public Use
  Company Number: GB-WATSON-2014-20473

PATIENT
  Age: 75 Year
  Sex: Male

DRUGS (1)
  1. CEFUROXIME SODIUM (UNKNOWN) [Suspect]
     Active Substance: CEFUROXIME SODIUM
     Indication: ANTIBIOTIC PROPHYLAXIS
     Dosage: 10 MG, UNK; STRENGH OF 100 MG/ML WITH 0.1 ML DOSE PROVIDING 10 MG BEING ADMINISTERED
     Route: 031
     Dates: start: 20140726, end: 20140726

REACTIONS (3)
  - Wrong technique in drug usage process [Unknown]
  - Visual impairment [Not Recovered/Not Resolved]
  - Accidental overdose [Unknown]

NARRATIVE: CASE EVENT DATE: 20140727
